FAERS Safety Report 24350033 (Version 1)
Quarter: 2024Q3

REPORT INFORMATION
  Report Type: Report from Study
  Country: US (occurrence: US)
  Receive Date: 20240923
  Receipt Date: 20240923
  Transmission Date: 20241017
  Serious: No
  Sender: ROCHE
  Company Number: US-ROCHE-3497201

PATIENT
  Age: 44 Year
  Sex: Male

DRUGS (12)
  1. HERCEPTIN [Suspect]
     Active Substance: TRASTUZUMAB
     Indication: Rectal cancer
     Dosage: LOADING DOSE 8 MG PER KG GIVEN ?696 MG IV ONCE THEN 522 MG EVERY 3 WEEKS. (6 MG PER KG)?DATE OF SERV
     Route: 041
     Dates: start: 20240116
  2. HERCEPTIN [Suspect]
     Active Substance: TRASTUZUMAB
     Indication: Gastrointestinal carcinoma
  3. TUKYSA [Concomitant]
     Active Substance: TUCATINIB
  4. LOSARTAN [Concomitant]
     Active Substance: LOSARTAN\LOSARTAN POTASSIUM
  5. CLINDAMYCIN [Concomitant]
     Active Substance: CLINDAMYCIN
  6. MORPHINE [Concomitant]
     Active Substance: MORPHINE
  7. OMEPRAZOLE [Concomitant]
     Active Substance: OMEPRAZOLE
  8. OXYCODONE [Concomitant]
     Active Substance: OXYCODONE
  9. ZOFRAN [Concomitant]
     Active Substance: ONDANSETRON HYDROCHLORIDE
  10. SENNA [Concomitant]
     Active Substance: SENNA LEAF\SENNOSIDES\SENNOSIDES A AND B
  11. NALOXONE [Concomitant]
     Active Substance: NALOXONE
  12. REGLAN [Concomitant]
     Active Substance: METOCLOPRAMIDE HYDROCHLORIDE

REACTIONS (2)
  - Off label use [Unknown]
  - No adverse event [Unknown]
